FAERS Safety Report 9100414 (Version 1)
Quarter: 2013Q1

REPORT INFORMATION
  Report Type: Spontaneous
  Country: US (occurrence: US)
  Receive Date: 20130215
  Receipt Date: 20130215
  Transmission Date: 20140127
  Serious: Yes (Hospitalization)
  Sender: FDA-Public Use
  Company Number: US-VERTEX PHARMACEUTICALS INC.-2013-002068

PATIENT
  Age: 42 Year
  Sex: Male

DRUGS (7)
  1. INCIVEK [Suspect]
     Indication: CHRONIC HEPATITIS C
     Dosage: 2250 MG, QD
     Route: 048
     Dates: start: 20120806, end: 20120906
  2. PEGINTERFERON ALFA-2A [Suspect]
     Indication: CHRONIC HEPATITIS C
     Dosage: 180 DF, UNK
     Route: 058
     Dates: start: 20120806, end: 20120926
  3. RIBAVIRIN [Suspect]
     Indication: CHRONIC HEPATITIS C
     Dosage: 600 MG, QD
     Route: 048
     Dates: start: 20120806, end: 20120926
  4. BUSPAR [Concomitant]
  5. LAMOTRIGINE [Concomitant]
  6. CELEXA [Concomitant]
  7. TRAZODONE HCL [Concomitant]

REACTIONS (1)
  - Depression [Unknown]
